FAERS Safety Report 5582805-7 (Version None)
Quarter: 2007Q4

REPORT INFORMATION
  Report Type: 
  Country: None (occurrence: None)
  Receive Date: 20071231
  Receipt Date: 20071217
  Transmission Date: 20080405
  Serious: Yes (Other)
  Sender: FDA-Public Use
  Company Number: 8028176

PATIENT
  Age: 12 Year
  Sex: Female
  Weight: 70 kg

DRUGS (2)
  1. EQUASYM [Suspect]
     Indication: ATTENTION DEFICIT/HYPERACTIVITY DISORDER
     Dosage: 30 MG 1/D PO
     Route: 048
     Dates: start: 20071025, end: 20071031
  2. METHYLPHENIDATE HCL [Concomitant]

REACTIONS (3)
  - DYSPNOEA [None]
  - HEART RATE INCREASED [None]
  - WHEEZING [None]
